FAERS Safety Report 4970846-X (Version None)
Quarter: 2006Q2

REPORT INFORMATION
  Report Type: 
  Country: None (occurrence: None)
  Receive Date: 20060412
  Receipt Date: 20060406
  Transmission Date: 20061013
  Serious: Yes (Other)
  Sender: FDA-Public Use
  Company Number: US-AVENTIS-200613309US

PATIENT
  Sex: Female

DRUGS (5)
  1. ALLEGRA [Suspect]
     Indication: NASAL CONGESTION
     Dosage: DOSE: ONE TABLET
     Route: 048
     Dates: start: 20060201
  2. ALLEGRA [Suspect]
     Dosage: DOSE: ONE TABLET
     Route: 048
     Dates: start: 20060101
  3. ALLEGRA [Suspect]
     Indication: POSTNASAL DRIP
     Dosage: DOSE: ONE TABLET
     Route: 048
     Dates: start: 20060201
  4. ALLEGRA [Suspect]
     Dosage: DOSE: ONE TABLET
     Route: 048
     Dates: start: 20060101
  5. SEREVENT [Concomitant]
     Dosage: DOSE: UNK

REACTIONS (5)
  - ANAL ABSCESS [None]
  - FATIGUE [None]
  - HEADACHE [None]
  - INSOMNIA [None]
  - MEDICATION RESIDUE [None]
